FAERS Safety Report 9112789 (Version 3)
Quarter: 2014Q1

REPORT INFORMATION
  Report Type: Spontaneous
  Country: US (occurrence: US)
  Receive Date: 20130211
  Receipt Date: 20140306
  Transmission Date: 20141002
  Serious: No
  Sender: FDA-Public Use
  Company Number: US-PFIZER INC-2013048903

PATIENT
  Age: 52 Year
  Sex: Female
  Weight: 77 kg

DRUGS (3)
  1. PREMPRO [Suspect]
     Indication: MENOPAUSAL SYMPTOMS
     Dosage: 0.3/1.5 MG,1X/DAY
     Route: 048
     Dates: start: 20121024, end: 20130107
  2. PREMPRO [Suspect]
     Dosage: 0.625/2.5MG, 1X/DAY
     Route: 048
     Dates: start: 20130107, end: 2013
  3. PREMPRO [Suspect]
     Dosage: 0.3/1.5MG, 1X/DAY
     Route: 048
     Dates: start: 2013

REACTIONS (6)
  - Respiratory disorder [Unknown]
  - Drug ineffective [Not Recovered/Not Resolved]
  - Drug dispensing error [Unknown]
  - Incorrect dose administered [Unknown]
  - Headache [Unknown]
  - Palpitations [Unknown]
